FAERS Safety Report 4835282-5 (Version None)
Quarter: 2005Q4

REPORT INFORMATION
  Report Type: 
  Country: None (occurrence: None)
  Receive Date: 20051122
  Receipt Date: 20051004
  Transmission Date: 20060501
  Serious: Yes (Other)
  Sender: FDA-Public Use
  Company Number: US-MERCK-0510USA02382

PATIENT
  Age: 46 Year
  Sex: Female
  Weight: 77 kg

DRUGS (5)
  1. VIOXX [Suspect]
     Indication: PAIN
     Route: 048
     Dates: start: 20020925, end: 20021025
  2. HYDROCODONE BITARTRATE [Concomitant]
     Route: 065
  3. CARISOPRODOL [Concomitant]
     Route: 065
  4. PREMARIN [Concomitant]
     Route: 065
  5. DIAZEPAM [Concomitant]
     Route: 065

REACTIONS (2)
  - CEREBROVASCULAR ACCIDENT [None]
  - MENTAL DISORDER [None]
